FAERS Safety Report 6274136-7 (Version None)
Quarter: 2009Q3

REPORT INFORMATION
  Report Type: 
  Country: None (occurrence: None)
  Receive Date: 20090720
  Receipt Date: 20090716
  Transmission Date: 20100115
  Serious: Yes (Death, Other)
  Sender: FDA-Public Use
  Company Number: PHHY2009BR29465

PATIENT
  Sex: Male

DRUGS (4)
  1. GALVUS MET COMBIPACK [Suspect]
     Indication: DIABETES MELLITUS
     Dosage: 1 IN THE MORNING AND 1 AT NIGHT
  2. TAMIRAM [Concomitant]
  3. PANTOPRAZOLE SODIUM [Concomitant]
  4. INSULIN [Concomitant]
     Indication: DIABETES MELLITUS

REACTIONS (4)
  - BLOOD GLUCOSE INCREASED [None]
  - DYSPNOEA [None]
  - HYPOTENSION [None]
  - MULTI-ORGAN FAILURE [None]
